FAERS Safety Report 7867884-6 (Version None)
Quarter: 2011Q4

REPORT INFORMATION
  Report Type: 
  Country: None (occurrence: None)
  Receive Date: 20111028
  Receipt Date: 20111025
  Transmission Date: 20120403
  Serious: Yes (Hospitalization)
  Sender: FDA-Public Use
  Company Number: US-PURDUE-USA-2011-0074493

PATIENT
  Sex: Female
  Weight: 83.447 kg

DRUGS (3)
  1. UNSPECIFIED DRUG [Suspect]
     Indication: PRODUCT USED FOR UNKNOWN INDICATION
  2. BUTRANS [Suspect]
     Indication: PAIN
     Dosage: 5 MCG, Q1H
     Route: 062
     Dates: start: 20110729
  3. KEPPRA [Suspect]
     Indication: CONVULSION
     Dosage: UNK

REACTIONS (2)
  - UNEVALUABLE EVENT [None]
  - HOSPITALISATION [None]
